FAERS Safety Report 5708359-X (Version None)
Quarter: 2008Q2

REPORT INFORMATION
  Report Type: 
  Country: None (occurrence: None)
  Receive Date: 20080417
  Receipt Date: 20080407
  Transmission Date: 20081010
  Serious: Yes (Death)
  Sender: FDA-Public Use
  Company Number: US-PFIZER INC-2008030600

PATIENT

DRUGS (2)
  1. LIPITOR [Suspect]
  2. DILANTIN [Suspect]

REACTIONS (1)
  - DEATH [None]
